FAERS Safety Report 9039247 (Version 1)
Quarter: 2013Q1

REPORT INFORMATION
  Report Type: Report from Study
  Country: US (occurrence: US)
  Receive Date: 20130129
  Receipt Date: 20130129
  Transmission Date: 20140127
  Serious: No
  Sender: FDA-Public Use
  Company Number: US-ABBOTT-12P-163-0932705-00

PATIENT
  Sex: 0
  Weight: 65.38 kg

DRUGS (1)
  1. HUMIRA 40 MG/0.8 ML PEN [Suspect]
     Indication: CROHN^S DISEASE
     Dates: start: 20120430, end: 20120430

REACTIONS (2)
  - Headache [Unknown]
  - Injection site pruritus [Recovering/Resolving]
